FAERS Safety Report 11134312 (Version 2)
Quarter: 2015Q2

REPORT INFORMATION
  Report Type: Spontaneous
  Country: ES (occurrence: ES)
  Receive Date: 20150525
  Receipt Date: 20150623
  Transmission Date: 20150821
  Serious: Yes (Other)
  Sender: FDA-Public Use
  Company Number: ES-AMGEN-ESPSP2015045007

PATIENT
  Sex: Female

DRUGS (3)
  1. NOLOTIL                            /00473101/ [Concomitant]
     Active Substance: METAMIZOLE
  2. PROLIA [Suspect]
     Active Substance: DENOSUMAB
     Indication: OSTEOPOROSIS
     Dosage: UNK
     Route: 065
     Dates: start: 201411
  3. ZOLPIDEM [Concomitant]
     Active Substance: ZOLPIDEM\ZOLPIDEM TARTRATE

REACTIONS (16)
  - Dizziness [Unknown]
  - Paraesthesia oral [Recovered/Resolved]
  - Mouth ulceration [Recovered/Resolved]
  - Back pain [Unknown]
  - Eye pain [Recovered/Resolved]
  - Vomiting [Recovered/Resolved]
  - Pain [Unknown]
  - Arthralgia [Unknown]
  - Adverse drug reaction [Unknown]
  - Paraesthesia [Recovered/Resolved]
  - Pain in extremity [Unknown]
  - Cellulitis [Unknown]
  - Acne [Unknown]
  - Peau d^orange [Unknown]
  - Dyspepsia [Unknown]
  - Pharyngitis [Unknown]

NARRATIVE: CASE EVENT DATE: 201411
